FAERS Safety Report 24821296 (Version 2)
Quarter: 2025Q2

REPORT INFORMATION
  Report Type: Spontaneous
  Country: US (occurrence: US)
  Receive Date: 20250108
  Receipt Date: 20250612
  Transmission Date: 20250716
  Serious: No
  Sender: SANOFI AVENTIS
  Company Number: US-SANOFI-02358936

PATIENT
  Age: 53 Year
  Sex: Male

DRUGS (10)
  1. DUPIXENT [Suspect]
     Active Substance: DUPILUMAB
     Indication: Asthma
     Dosage: 200 MG, QOW
     Route: 058
     Dates: start: 20220831
  2. PREDNISONE [Concomitant]
     Active Substance: PREDNISONE
  3. SINGULAIR [Concomitant]
     Active Substance: MONTELUKAST SODIUM
  4. AZITHROMYCIN [Concomitant]
     Active Substance: AZITHROMYCIN
  5. NORVASC [Concomitant]
     Active Substance: AMLODIPINE BESYLATE
  6. LISINOPRIL [Concomitant]
     Active Substance: LISINOPRIL
  7. HYDROCHLOROTHIAZIDE [Concomitant]
     Active Substance: HYDROCHLOROTHIAZIDE
  8. LIPITOR [Concomitant]
     Active Substance: ATORVASTATIN CALCIUM
  9. GUAIFENESIN [Concomitant]
     Active Substance: GUAIFENESIN
  10. LYRICA [Concomitant]
     Active Substance: PREGABALIN

REACTIONS (4)
  - Injection site pain [Unknown]
  - Accidental exposure to product [Unknown]
  - Exposure via skin contact [Unknown]
  - Product administered by wrong person [Unknown]

NARRATIVE: CASE EVENT DATE: 20250101
